FAERS Safety Report 9573865 (Version 2)
Quarter: 2013Q4

REPORT INFORMATION
  Report Type: Spontaneous
  Country: US (occurrence: US)
  Receive Date: 20131001
  Receipt Date: 20131028
  Transmission Date: 20140711
  Serious: Yes (Other)
  Sender: FDA-Public Use
  Company Number: US-ELI_LILLY_AND_COMPANY-US201309008831

PATIENT
  Age: 81 Year
  Sex: Male

DRUGS (5)
  1. CIALIS [Suspect]
     Indication: ERECTILE DYSFUNCTION
     Dosage: 5 MG, QD
     Route: 048
     Dates: start: 2012
  2. CIALIS [Interacting]
     Indication: BENIGN PROSTATIC HYPERPLASIA
     Dosage: 5 MG, PRN
     Route: 048
  3. BYSTOLIC [Interacting]
     Indication: HYPERTENSION
     Dosage: 10 MG, QD
     Dates: start: 2012
  4. BYSTOLIC [Interacting]
     Dosage: 20 MG, QD
     Route: 065
     Dates: start: 2013
  5. INFLUENZA VACCINE [Concomitant]
     Dosage: 1 DF, SINGLE
     Route: 030
     Dates: start: 20130923

REACTIONS (6)
  - Blindness [Recovered/Resolved]
  - Feeling abnormal [Recovered/Resolved]
  - Sciatica [Unknown]
  - Asthenia [Unknown]
  - Palpitations [Recovered/Resolved]
  - Drug interaction [Unknown]
